FAERS Safety Report 20954917 (Version 1)
Quarter: 2022Q2

REPORT INFORMATION
  Report Type: Spontaneous
  Country: US (occurrence: None)
  Receive Date: 20220614
  Receipt Date: 20220614
  Transmission Date: 20220721
  Serious: No
  Sender: FDA-Public Use
  Company Number: US-MDD US Operations-MDD202108-001609

PATIENT
  Age: 77 Year
  Sex: Female

DRUGS (17)
  1. APOKYN [Suspect]
     Active Substance: APOMORPHINE HYDROCHLORIDE
     Dosage: UPTO 0.1 ML PER DOSE
     Route: 058
  2. NOVOLIN NOS [Concomitant]
     Active Substance: INSULIN HUMAN
     Dosage: 70-30 PER ML VIAL
  3. FLOVENT HFA [Concomitant]
     Active Substance: FLUTICASONE PROPIONATE
  4. CINNAMON [Concomitant]
     Active Substance: CINNAMON
  5. AMANTADINE [Concomitant]
     Active Substance: AMANTADINE
  6. SINEMET [Concomitant]
     Active Substance: CARBIDOPA\LEVODOPA
     Dosage: 10MG-100MG
  7. TOPROL XL [Concomitant]
     Active Substance: METOPROLOL SUCCINATE
  8. METFORMIN HYDROCHLORIDE [Concomitant]
     Active Substance: METFORMIN HYDROCHLORIDE
  9. DILANTIN [Concomitant]
     Active Substance: PHENYTOIN
     Dosage: NOT PROVIDED
  10. VITAMIN D2 [Concomitant]
     Active Substance: ERGOCALCIFEROL
  11. MICARDIS [Concomitant]
     Active Substance: TELMISARTAN
  12. PLAVIX [Concomitant]
     Active Substance: CLOPIDOGREL BISULFATE
  13. LIPITOR [Concomitant]
     Active Substance: ATORVASTATIN CALCIUM
  14. AZILECT [Concomitant]
     Active Substance: RASAGILINE MESYLATE
  15. SINGULAIR [Concomitant]
     Active Substance: MONTELUKAST SODIUM
  16. ASPIRIN [Concomitant]
     Active Substance: ASPIRIN
  17. RABEPRAZOLE SODIUM [Concomitant]
     Active Substance: RABEPRAZOLE SODIUM

REACTIONS (1)
  - Adverse event [Unknown]
